FAERS Safety Report 18718553 (Version 2)
Quarter: 2021Q2

REPORT INFORMATION
  Report Type: Report from Study
  Country: CO (occurrence: CO)
  Receive Date: 20210108
  Receipt Date: 20210428
  Transmission Date: 20210717
  Serious: Yes (Life-Threatening)
  Sender: FDA-Public Use
  Company Number: CO-INCYTE CORPORATION-2017IN010117

PATIENT

DRUGS (4)
  1. OMEPRAZOLE. [Concomitant]
     Active Substance: OMEPRAZOLE
     Indication: PRODUCT USED FOR UNKNOWN INDICATION
     Dosage: UNK
     Route: 065
  2. JAKAVI [Suspect]
     Active Substance: RUXOLITINIB
     Indication: POLYCYTHAEMIA VERA
     Dosage: 20 MG, Q12H
     Route: 048
  3. JAKAVI [Suspect]
     Active Substance: RUXOLITINIB
     Dosage: UNK
     Route: 048
  4. JAKAVI [Suspect]
     Active Substance: RUXOLITINIB
     Indication: MYELOFIBROSIS
     Dosage: 20 MG, QD
     Route: 048
     Dates: start: 20160808

REACTIONS (13)
  - Drug dependence [Unknown]
  - Boredom [Unknown]
  - Memory impairment [Unknown]
  - Illness [Unknown]
  - Feeling abnormal [Unknown]
  - Cough [Unknown]
  - Full blood count increased [Unknown]
  - Anxiety [Unknown]
  - Inappropriate schedule of product administration [Unknown]
  - Feeling hot [Unknown]
  - Weight decreased [Unknown]
  - Depressed mood [Unknown]
  - Fatigue [Unknown]

NARRATIVE: CASE EVENT DATE: 20160808
